FAERS Safety Report 24663404 (Version 2)
Quarter: 2025Q1

REPORT INFORMATION
  Report Type: Spontaneous
  Country: US (occurrence: None)
  Receive Date: 20241126
  Receipt Date: 20250226
  Transmission Date: 20250408
  Serious: No
  Sender: AXSOME THERAPEUTICS, INC.
  Company Number: US-Axsome Therapeutics, Inc.-AXS202411-001835

PATIENT
  Age: 24 Year
  Sex: Female

DRUGS (4)
  1. AUVELITY [Suspect]
     Active Substance: BUPROPION HYDROCHLORIDE\DEXTROMETHORPHAN HYDROBROMIDE
     Indication: Major depression
     Route: 048
     Dates: start: 20241029, end: 20241101
  2. AUVELITY [Suspect]
     Active Substance: BUPROPION HYDROCHLORIDE\DEXTROMETHORPHAN HYDROBROMIDE
     Route: 048
     Dates: start: 20241102, end: 20241102
  3. AUVELITY [Suspect]
     Active Substance: BUPROPION HYDROCHLORIDE\DEXTROMETHORPHAN HYDROBROMIDE
     Route: 048
     Dates: start: 20241103
  4. KLONOPIN [Concomitant]
     Active Substance: CLONAZEPAM
     Indication: Anxiety
     Route: 065

REACTIONS (16)
  - Head discomfort [Recovered/Resolved]
  - Dissociative disorder [Recovered/Resolved]
  - Metamorphopsia [Unknown]
  - Feeling abnormal [Unknown]
  - Disorientation [Unknown]
  - Sluggishness [Recovered/Resolved]
  - Electric shock sensation [Unknown]
  - Brain fog [Unknown]
  - Impaired driving ability [Unknown]
  - Dry mouth [Recovering/Resolving]
  - Headache [Recovering/Resolving]
  - Vision blurred [Unknown]
  - Euphoric mood [Unknown]
  - Somnolence [Unknown]
  - Dizziness [Recovering/Resolving]
  - Off label use [Unknown]

NARRATIVE: CASE EVENT DATE: 20241101
